FAERS Safety Report 16202832 (Version 1)
Quarter: 2019Q2

REPORT INFORMATION
  Report Type: Spontaneous
  Country: US (occurrence: US)
  Receive Date: 20190311
  Receipt Date: 20190311
  Transmission Date: 20190711
  Serious: Yes (Hospitalization, Other)
  Sender: FDA-Public Use
  Company Number: None

PATIENT

DRUGS (1)
  1. HYDRALAZINE [Suspect]
     Active Substance: HYDRALAZINE HYDROCHLORIDE

REACTIONS (6)
  - Hallucination, visual [None]
  - Tremor [None]
  - Hypersensitivity [None]
  - Screaming [None]
  - Crying [None]
  - Diplegia [None]

NARRATIVE: CASE EVENT DATE: 20190209
